FAERS Safety Report 17658751 (Version 1)
Quarter: 2020Q2

REPORT INFORMATION
  Report Type: Report from Study
  Country: None (occurrence: US)
  Receive Date: 20200413
  Receipt Date: 20200413
  Transmission Date: 20200713
  Serious: Yes (Hospitalization)
  Sender: FDA-Public Use
  Company Number: US-ABBVIE-20P-163-3355259-00

PATIENT
  Sex: Male

DRUGS (1)
  1. IMBRUVICA [Suspect]
     Active Substance: IBRUTINIB
     Indication: CHRONIC LYMPHOCYTIC LEUKAEMIA
     Route: 048
     Dates: start: 20190326, end: 20200122

REACTIONS (9)
  - Vomiting [Unknown]
  - Coronavirus infection [Unknown]
  - Neck mass [Unknown]
  - Respiratory tract infection [Recovered/Resolved]
  - White blood cell count decreased [Unknown]
  - Malaise [Unknown]
  - Lung disorder [Unknown]
  - Nasopharyngitis [Unknown]
  - Neuropathy peripheral [Unknown]

NARRATIVE: CASE EVENT DATE: 2019
